FAERS Safety Report 9844587 (Version 2)
Quarter: 2014Q1

REPORT INFORMATION
  Report Type: Spontaneous
  Country: US (occurrence: US)
  Receive Date: 20140127
  Receipt Date: 20140331
  Transmission Date: 20141002
  Serious: Yes (Other)
  Sender: FDA-Public Use
  Company Number: US-JNJFOC-20140107937

PATIENT
  Age: 75 Year
  Sex: Female
  Weight: 92.53 kg

DRUGS (13)
  1. EXTRA STRENGTH TYLENOL CAPLETS [Suspect]
     Indication: PAIN
     Route: 048
     Dates: end: 20140111
  2. EXTRA STRENGTH TYLENOL CAPLETS [Suspect]
     Indication: PYREXIA
     Route: 048
     Dates: end: 20140111
  3. COUMADIN [Interacting]
     Indication: ANTICOAGULANT THERAPY
     Route: 065
  4. SYMBICORT [Concomitant]
     Indication: CHRONIC OBSTRUCTIVE PULMONARY DISEASE
     Route: 065
  5. PROAIR (FLUTICASONE PROPIONATE) [Concomitant]
     Indication: CHRONIC OBSTRUCTIVE PULMONARY DISEASE
     Route: 065
  6. ALBUTEROL [Concomitant]
     Indication: CHRONIC OBSTRUCTIVE PULMONARY DISEASE
     Route: 065
  7. SPIRIVA [Concomitant]
     Indication: CHRONIC OBSTRUCTIVE PULMONARY DISEASE
     Route: 065
  8. TIKOSYN [Concomitant]
     Indication: CARDIAC DISORDER
     Route: 065
  9. LOVASTATIN [Concomitant]
     Indication: BLOOD PRESSURE ABNORMAL
     Route: 065
  10. FUROSEMIDE [Concomitant]
     Indication: PULMONARY OEDEMA
     Route: 065
  11. METOPROLOL [Concomitant]
     Indication: ATRIAL FIBRILLATION
     Route: 065
  12. HEART MEDICATION (NOS) [Concomitant]
     Indication: CARDIAC DISORDER
     Route: 065
  13. OTHER THERAPEUTIC DRUGS [Concomitant]
     Indication: PRODUCT USED FOR UNKNOWN INDICATION
     Route: 065

REACTIONS (2)
  - Haemoptysis [Recovered/Resolved]
  - Drug interaction [Unknown]
